FAERS Safety Report 22594798 (Version 1)
Quarter: 2023Q2

REPORT INFORMATION
  Report Type: Spontaneous
  Country: US (occurrence: None)
  Receive Date: 20230612
  Receipt Date: 20230612
  Transmission Date: 20230722
  Serious: Yes (Hospitalization)
  Sender: FDA-Public Use
  Company Number: None

PATIENT
  Age: 49 Year
  Sex: Male
  Weight: 70.76 kg

DRUGS (11)
  1. DEFERASIROX [Suspect]
     Active Substance: DEFERASIROX
     Indication: Anaemia
     Dosage: 125MG  DAILY M,W,F ORAL
     Route: 048
     Dates: start: 202303
  2. DEFERASIROX [Suspect]
     Active Substance: DEFERASIROX
     Indication: Chronic kidney disease
     Dosage: 250MG  DAILY M,W,F ORAL?
     Route: 048
     Dates: start: 202303
  3. GABAPENTIN [Concomitant]
  4. NORCO [Concomitant]
     Active Substance: ACETAMINOPHEN\HYDROCODONE BITARTRATE
  5. METOPRLOL [Concomitant]
  6. OYSCO [Concomitant]
  7. PREDNISONE [Concomitant]
     Active Substance: PREDNISONE
  8. RENVELA [Concomitant]
     Active Substance: SEVELAMER CARBONATE
  9. SEROQUEL [Concomitant]
     Active Substance: QUETIAPINE FUMARATE
  10. SODIUM BICARBONATE [Concomitant]
     Active Substance: SODIUM BICARBONATE
  11. ULORIC [Concomitant]
     Active Substance: FEBUXOSTAT

REACTIONS (1)
  - Intensive care [None]
